FAERS Safety Report 25503930 (Version 1)
Quarter: 2025Q3

REPORT INFORMATION
  Report Type: Other
  Country: CA (occurrence: CA)
  Receive Date: 20250702
  Receipt Date: 20250702
  Transmission Date: 20251021
  Serious: Yes (Hospitalization)
  Sender: APOTEX
  Company Number: CA-PGRTD-E2B_07728989

PATIENT
  Age: 46 Year
  Sex: Male

DRUGS (4)
  1. LITHIUM [Suspect]
     Active Substance: LITHIUM
     Indication: Mania
     Route: 065
  2. ROSUVASTATIN [Suspect]
     Active Substance: ROSUVASTATIN
     Indication: Dyslipidaemia
     Route: 065
  3. HERBALS [Suspect]
     Active Substance: HERBALS
     Indication: Decreased appetite
     Route: 065
  4. A.VOGEL MULTIVITAMIN [Concomitant]

REACTIONS (3)
  - Job change [Recovering/Resolving]
  - Herbal interaction [Recovering/Resolving]
  - Abnormal behaviour [Recovering/Resolving]
